FAERS Safety Report 24603656 (Version 3)
Quarter: 2025Q2

REPORT INFORMATION
  Report Type: Spontaneous
  Country: IT (occurrence: IT)
  Receive Date: 20241111
  Receipt Date: 20250521
  Transmission Date: 20250716
  Serious: No
  Sender: ZAMBON
  Company Number: IT-ZAMBON-202403003COR

PATIENT

DRUGS (1)
  1. FOSFOMYCIN TROMETHAMINE [Suspect]
     Active Substance: FOSFOMYCIN TROMETHAMINE
     Indication: Cystitis
     Route: 048
     Dates: start: 20241023, end: 20241024

REACTIONS (1)
  - Diarrhoea [Recovered/Resolved]

NARRATIVE: CASE EVENT DATE: 20241023
